FAERS Safety Report 4286642-5 (Version None)
Quarter: 2004Q1

REPORT INFORMATION
  Report Type: 
  Country: None (occurrence: None)
  Receive Date: 20040206
  Receipt Date: 20040126
  Transmission Date: 20041129
  Serious: Yes (Other)
  Sender: FDA-Public Use
  Company Number: WAES 0401USA02114

PATIENT
  Age: 51 Year
  Sex: Male

DRUGS (2)
  1. PEPCID [Suspect]
     Route: 042
  2. PENTCILLIN [Suspect]

REACTIONS (2)
  - EOSINOPHILIA [None]
  - HAEMOLYTIC ANAEMIA [None]
